FAERS Safety Report 19328728 (Version 1)
Quarter: 2021Q2

REPORT INFORMATION
  Report Type: Spontaneous
  Country: US (occurrence: US)
  Receive Date: 20210528
  Receipt Date: 20210528
  Transmission Date: 20210717
  Serious: No
  Sender: FDA-Public Use
  Company Number: US-CELGENEUS-USA-20210504997

PATIENT
  Age: 60 Year
  Sex: Male
  Weight: 127.12 kg

DRUGS (2)
  1. REVLIMID [Suspect]
     Active Substance: LENALIDOMIDE
     Dosage: 25 MILLIGRAM
     Route: 048
     Dates: start: 201908
  2. REVLIMID [Suspect]
     Active Substance: LENALIDOMIDE
     Indication: PRODUCT USED FOR UNKNOWN INDICATION
     Dosage: 25?2MG
     Route: 048
     Dates: start: 201908

REACTIONS (2)
  - Urinary tract infection [Recovered/Resolved]
  - Bone lesion [Recovered/Resolved]

NARRATIVE: CASE EVENT DATE: 20210501
